FAERS Safety Report 7626417-X (Version None)
Quarter: 2011Q3

REPORT INFORMATION
  Report Type: 
  Country: None (occurrence: None)
  Receive Date: 20110721
  Receipt Date: 20110708
  Transmission Date: 20111222
  Serious: Yes (Hospitalization, Other)
  Sender: FDA-Public Use
  Company Number: US-ROCHE-552278

PATIENT
  Sex: Female
  Weight: 53.5 kg

DRUGS (1)
  1. ACCUTANE [Suspect]
     Indication: ACNE
     Route: 065
     Dates: start: 19980219, end: 19980527

REACTIONS (9)
  - IRON DEFICIENCY ANAEMIA [None]
  - INFLAMMATORY BOWEL DISEASE [None]
  - ANAL FISTULA [None]
  - ANXIETY DISORDER [None]
  - RECTAL ABSCESS [None]
  - CROHN'S DISEASE [None]
  - DEPRESSION [None]
  - RATHKE'S CLEFT CYST [None]
  - ARTHRALGIA [None]
